FAERS Safety Report 22158789 (Version 4)
Quarter: 2023Q2

REPORT INFORMATION
  Report Type: Report from Study
  Country: CL (occurrence: CL)
  Receive Date: 20230331
  Receipt Date: 20230606
  Transmission Date: 20230721
  Serious: Yes (Other)
  Sender: FDA-Public Use
  Company Number: CL-JNJFOC-20230373861

PATIENT
  Age: 36 Year
  Sex: Female

DRUGS (1)
  1. SIMPONI [Suspect]
     Active Substance: GOLIMUMAB
     Indication: Rheumatoid arthritis
     Route: 058
     Dates: start: 20230220

REACTIONS (9)
  - Cellulitis [Recovering/Resolving]
  - Skin bacterial infection [Recovering/Resolving]
  - Subcutaneous abscess [Recovering/Resolving]
  - Rash [Recovering/Resolving]
  - COVID-19 [Unknown]
  - Palmar-plantar erythrodysaesthesia syndrome [Unknown]
  - Immune system disorder [Not Recovered/Not Resolved]
  - Nasopharyngitis [Unknown]
  - Urticaria [Unknown]

NARRATIVE: CASE EVENT DATE: 20230101
